FAERS Safety Report 20757247 (Version 1)
Quarter: 2022Q2

REPORT INFORMATION
  Report Type: Report from Study
  Country: US (occurrence: None)
  Receive Date: 20220427
  Receipt Date: 20220427
  Transmission Date: 20220721
  Serious: Yes (Death)
  Sender: FDA-Public Use
  Company Number: 2022A163881

PATIENT
  Sex: Male
  Weight: 94.8 kg

DRUGS (12)
  1. TAGRISSO [Suspect]
     Active Substance: OSIMERTINIB
     Indication: Lung neoplasm malignant
     Route: 048
     Dates: start: 20211215
  2. LASIX [Concomitant]
     Active Substance: FUROSEMIDE
     Route: 065
  3. ELIQUIS [Concomitant]
     Active Substance: APIXABAN
     Route: 065
  4. PROTONIX [Concomitant]
     Active Substance: PANTOPRAZOLE SODIUM
     Route: 065
  5. GABAPENTIN [Concomitant]
     Active Substance: GABAPENTIN
     Route: 065
  6. HYDROCHLOROTHIAZIDE [Concomitant]
     Active Substance: HYDROCHLOROTHIAZIDE
     Route: 065
  7. ALLEGRA-D [Concomitant]
     Active Substance: FEXOFENADINE HYDROCHLORIDE\PSEUDOEPHEDRINE HYDROCHLORIDE
     Route: 065
  8. BENZONATATE [Concomitant]
     Active Substance: BENZONATATE
     Route: 065
  9. METHOCARBAMOL [Concomitant]
     Active Substance: METHOCARBAMOL
     Route: 065
  10. DECADRON [Concomitant]
     Active Substance: DEXAMETHASONE
     Route: 065
  11. OXYCONTIN [Concomitant]
     Active Substance: OXYCODONE HYDROCHLORIDE
     Route: 065
  12. COLACE [Concomitant]
     Active Substance: DOCUSATE SODIUM
     Route: 065

REACTIONS (1)
  - Death [Fatal]
